FAERS Safety Report 7153917-1 (Version None)
Quarter: 2010Q4

REPORT INFORMATION
  Report Type: 
  Country: None (occurrence: None)
  Receive Date: 20101213
  Receipt Date: 20101130
  Transmission Date: 20110411
  Serious: Yes (Life-Threatening, Other)
  Sender: FDA-Public Use
  Company Number: PHHY2010JP82855

PATIENT
  Sex: Male

DRUGS (10)
  1. DIOVAN [Suspect]
     Indication: HYPERTENSION
     Dosage: 80 MG, QD
     Route: 048
     Dates: start: 20080821, end: 20091211
  2. DIOVAN [Suspect]
     Dosage: 40 MG, QD
     Route: 048
     Dates: start: 20100305
  3. CONIEL [Concomitant]
     Dosage: 4 MG, UNK
     Route: 048
     Dates: start: 20081213, end: 20091211
  4. URSO 250 [Concomitant]
     Dosage: 6 DF, UNK
     Route: 048
     Dates: start: 20080614, end: 20091211
  5. ADETPHOS [Concomitant]
     Dosage: 03 G, UNK
     Route: 048
     Dates: start: 20081201
  6. MENIACE [Concomitant]
     Dosage: 06 DF, UNK
     Route: 048
     Dates: start: 20081201
  7. ZYLORIC [Concomitant]
     Dosage: 02 DF, UNK
     Route: 048
     Dates: start: 20090910
  8. ZYLORIC [Concomitant]
     Dosage: 01 DF, UNK
     Route: 048
  9. PARIET [Concomitant]
     Dosage: 10 MG, UNK
     Route: 048
     Dates: start: 20090925, end: 20091211
  10. URIEF [Concomitant]
     Dosage: 02 DF, UNK
     Route: 048
     Dates: start: 20100430

REACTIONS (7)
  - BENIGN PROSTATIC HYPERPLASIA [None]
  - DIZZINESS [None]
  - GASTRIC CANCER [None]
  - HYPERURICAEMIA [None]
  - LARGE INTESTINE CARCINOMA [None]
  - LUNG CANCER METASTATIC [None]
  - PULMONARY MASS [None]
